FAERS Safety Report 4493843-X (Version None)
Quarter: 2004Q4

REPORT INFORMATION
  Report Type: 
  Country: None (occurrence: None)
  Receive Date: 20041105
  Receipt Date: 20041026
  Transmission Date: 20050328
  Serious: Yes (Other)
  Sender: FDA-Public Use
  Company Number: PL-JNJFOC-20040400746

PATIENT
  Sex: Female

DRUGS (11)
  1. BLINDED; ABCIXIMA [Suspect]
     Indication: ACUTE MYOCARDIAL INFARCTION
     Route: 042
     Dates: start: 20040402, end: 20040402
  2. RETEPLASE [Suspect]
     Route: 042
     Dates: start: 20040402, end: 20040402
  3. RETEPLASE [Suspect]
     Indication: ACUTE MYOCARDIAL INFARCTION
     Route: 042
     Dates: start: 20040402, end: 20040402
  4. PLACEBO [Suspect]
     Indication: ACUTE MYOCARDIAL INFARCTION
     Route: 042
     Dates: start: 20040402, end: 20040402
  5. TENECTEPLASE [Suspect]
     Indication: DRUG USE FOR UNKNOWN INDICATION
  6. ASPIRIN [Concomitant]
  7. CLOPIDOGREL [Concomitant]
  8. SIMVASTATIN [Concomitant]
  9. GASEC [Concomitant]
  10. BISOCARD [Concomitant]
  11. ENAP [Concomitant]
     Route: 049

REACTIONS (4)
  - DRUG INTERACTION [None]
  - HAEMATOMA [None]
  - PUNCTURE SITE HAEMORRHAGE [None]
  - THROMBOCYTOPENIA [None]
